FAERS Safety Report 11052010 (Version 1)
Quarter: 2015Q2

REPORT INFORMATION
  Report Type: Spontaneous
  Country: US (occurrence: US)
  Receive Date: 20150421
  Receipt Date: 20150421
  Transmission Date: 20150821
  Serious: Yes (Life-Threatening, Disabling, Other)
  Sender: FDA-Public Use
  Company Number: US-BAYER-2015-132704

PATIENT
  Age: 75 Year
  Sex: Female

DRUGS (4)
  1. ACETYLSALICYLIC ACID (} 100 MG) [Suspect]
     Active Substance: ASPIRIN
     Indication: MYOCARDIAL INFARCTION
     Dosage: 324 MG, ONCE
     Route: 048
  2. CLOPIDOGREL [Suspect]
     Active Substance: CLOPIDOGREL BISULFATE
     Indication: CORONARY ARTERY THROMBOSIS
     Dosage: 600 MG, ONCE
     Route: 048
  3. ABCIXIMAB [Suspect]
     Active Substance: ABCIXIMAB
     Indication: CORONARY ARTERY THROMBOSIS
     Dosage: 0.75 MG/KG
     Route: 042
  4. HEPARIN [Suspect]
     Active Substance: HEPARIN SODIUM
     Indication: CORONARY ARTERY THROMBOSIS
     Dosage: 60 UNITS/KG
     Route: 042

REACTIONS (9)
  - Platelet count decreased [Recovered/Resolved]
  - Hypotension [Recovered/Resolved]
  - Cardiopulmonary failure [Recovered/Resolved]
  - Peripheral ischaemia [None]
  - Subarachnoid haemorrhage [Recovered/Resolved]
  - Pulmonary alveolar haemorrhage [Recovered/Resolved]
  - Pseudomonal sepsis [Recovered/Resolved]
  - Acute respiratory distress syndrome [Recovered/Resolved]
  - Traumatic liver injury [Recovered/Resolved]
